FAERS Safety Report 17405615 (Version 2)
Quarter: 2020Q1

REPORT INFORMATION
  Report Type: Spontaneous
  Country: DE (occurrence: DE)
  Receive Date: 20200212
  Receipt Date: 20200219
  Transmission Date: 20200409
  Serious: Yes (Other)
  Sender: FDA-Public Use
  Company Number: DE-AUROBINDO-AUR-APL-2020-006502

PATIENT
  Age: 45 Year
  Sex: Female

DRUGS (2)
  1. TERBINAFINE TABLET [Suspect]
     Active Substance: TERBINAFINE
     Dosage: 250 MILLIGRAM, ONCE A DAY
     Route: 065
  2. TERBINAFINE TABLET [Suspect]
     Active Substance: TERBINAFINE
     Indication: BODY TINEA
     Dosage: 125 MILLIGRAM, ONCE A DAY
     Route: 065

REACTIONS (1)
  - Renal impairment [Recovered/Resolved]
